FAERS Safety Report 6652473-1 (Version None)
Quarter: 2010Q1

REPORT INFORMATION
  Report Type: 
  Country: None (occurrence: None)
  Receive Date: 20100323
  Receipt Date: 20100315
  Transmission Date: 20100710
  Serious: Yes (Other)
  Sender: FDA-Public Use
  Company Number: 2010SP015833

PATIENT
  Age: 29 Year
  Sex: Female

DRUGS (1)
  1. IMPLANON [Suspect]
     Indication: DRUG USE FOR UNKNOWN INDICATION
     Dosage: 1 DF; ;SC, 1 DF; ;SC
     Dates: end: 20090301

REACTIONS (3)
  - DRUG EXPOSURE BEFORE PREGNANCY [None]
  - PERIPHLEBITIS [None]
  - PREGNANCY [None]
